FAERS Safety Report 18889574 (Version 1)
Quarter: 2021Q1

REPORT INFORMATION
  Report Type: Spontaneous
  Country: US (occurrence: US)
  Receive Date: 20210213
  Receipt Date: 20210213
  Transmission Date: 20210420
  Serious: No
  Sender: FDA-Public Use
  Company Number: US-TEVA-2021-US-1875252

PATIENT
  Age: 63 Year
  Sex: Female

DRUGS (2)
  1. GRANIX [Suspect]
     Active Substance: TBO-FILGRASTIM
     Indication: NEUTROPENIA
  2. GRANIX [Suspect]
     Active Substance: TBO-FILGRASTIM
     Indication: SMALL CELL LUNG CANCER
     Dosage: 1 SYRINGE DAILY
     Route: 065
     Dates: start: 20201222

REACTIONS (2)
  - Off label use [Unknown]
  - Illness [Unknown]

NARRATIVE: CASE EVENT DATE: 20201222
